FAERS Safety Report 6126571-5 (Version None)
Quarter: 2009Q1

REPORT INFORMATION
  Report Type: 
  Country: None (occurrence: None)
  Receive Date: 20090320
  Receipt Date: 20090310
  Transmission Date: 20090719
  Serious: Yes (Other)
  Sender: FDA-Public Use
  Company Number: US-PFIZER INC-2006062741

PATIENT
  Sex: Female
  Weight: 73 kg

DRUGS (9)
  1. PROVERA [Suspect]
     Indication: HORMONE REPLACEMENT THERAPY
     Dosage: UNK
     Route: 048
     Dates: start: 19850101, end: 19970101
  2. PROVERA [Suspect]
     Indication: MENOPAUSE
  3. MEDROXYPROGESTERONE AND MEDROXYPROGESTERONE ACETATE [Suspect]
     Indication: HORMONE REPLACEMENT THERAPY
     Route: 048
     Dates: start: 19850101, end: 20040701
  4. PREMARIN [Suspect]
     Indication: HORMONE REPLACEMENT THERAPY
     Dosage: UNK
     Dates: start: 19850101, end: 19970101
  5. PREMARIN [Suspect]
     Indication: MENOPAUSE
  6. PREMPRO [Suspect]
     Indication: HORMONE REPLACEMENT THERAPY
     Dosage: UNK
     Route: 065
     Dates: start: 19970101, end: 20040101
  7. PREMPRO [Suspect]
     Indication: MENOPAUSE
  8. METHOTREXATE [Concomitant]
     Dosage: UNK
     Dates: start: 20020101, end: 20050101
  9. FOSAMAX [Concomitant]
     Dosage: UNK
     Dates: start: 20010101, end: 20050101

REACTIONS (1)
  - BREAST CANCER FEMALE [None]
